FAERS Safety Report 10612928 (Version 3)
Quarter: 2015Q1

REPORT INFORMATION
  Report Type: Spontaneous
  Country: US (occurrence: US)
  Receive Date: 20141127
  Receipt Date: 20150209
  Transmission Date: 20150720
  Serious: Yes (Life-Threatening, Congenital Anomaly)
  Sender: FDA-Public Use
  Company Number: US-ELI_LILLY_AND_COMPANY-US201411010114

PATIENT
  Age: 0 Day

DRUGS (2)
  1. PROZAC [Suspect]
     Active Substance: FLUOXETINE HYDROCHLORIDE
     Indication: PRODUCT USED FOR UNKNOWN INDICATION
     Route: 064
  2. SYMBYAX [Suspect]
     Active Substance: FLUOXETINE HYDROCHLORIDE\OLANZAPINE
     Indication: PRODUCT USED FOR UNKNOWN INDICATION
     Route: 064

REACTIONS (4)
  - Pulmonary artery stenosis congenital [Recovering/Resolving]
  - Neonatal respiratory distress syndrome [Recovered/Resolved]
  - Foetal exposure during pregnancy [Recovered/Resolved]
  - Transposition of the great vessels [Recovered/Resolved]

NARRATIVE: CASE EVENT DATE: 20100706
